FAERS Safety Report 22178110 (Version 1)
Quarter: 2023Q2

REPORT INFORMATION
  Report Type: Spontaneous
  Country: US (occurrence: None)
  Receive Date: 20230405
  Receipt Date: 20230405
  Transmission Date: 20230721
  Serious: No
  Sender: FDA-Public Use
  Company Number: None

PATIENT
  Age: 60 Year
  Sex: Male
  Weight: 90.26 kg

DRUGS (19)
  1. CAPECITABINE [Suspect]
     Active Substance: CAPECITABINE
     Indication: Rectal cancer
     Dosage: FREQUENCY : TWICE A DAY;?
     Route: 048
  2. ATORVASTATIN [Concomitant]
     Active Substance: ATORVASTATIN
  3. BEET ROOT [Concomitant]
  4. CARAFATE [Concomitant]
     Active Substance: SUCRALFATE
  5. CETIRIZINE [Concomitant]
     Active Substance: CETIRIZINE HYDROCHLORIDE
  6. CIALIS [Concomitant]
     Active Substance: TADALAFIL
  7. DIHENOXLATE-ATROPINE [Concomitant]
  8. FAMOTIDINE [Concomitant]
     Active Substance: FAMOTIDINE
  9. LEVOTHYROXINE [Concomitant]
     Active Substance: LEVOTHYROXINE
  10. LIDOCAINE\PRILOCAINE [Concomitant]
     Active Substance: LIDOCAINE\PRILOCAINE
  11. LORAZEPAM [Concomitant]
     Active Substance: LORAZEPAM
  12. METHOCARBAMAOL [Concomitant]
  13. PROCHLORPERAZINE [Concomitant]
     Active Substance: PROCHLORPERAZINE
  14. SIMETHICONE (DIMETHICONE) [Concomitant]
     Active Substance: DIMETHICONE
  15. SUCRALFATE [Concomitant]
     Active Substance: SUCRALFATE
  16. SUPER PROBIOTIC [Concomitant]
  17. VITAMIN B12 [Concomitant]
     Active Substance: CYANOCOBALAMIN
  18. VITAMIN D3 [Concomitant]
     Active Substance: CHOLECALCIFEROL
  19. ZINC SULFATE [Concomitant]
     Active Substance: ZINC SULFATE

REACTIONS (2)
  - Therapy interrupted [None]
  - Palmar-plantar erythrodysaesthesia syndrome [None]
